FAERS Safety Report 13839594 (Version 1)
Quarter: 2017Q3

REPORT INFORMATION
  Report Type: Spontaneous
  Country: GB (occurrence: GB)
  Receive Date: 20170807
  Receipt Date: 20170807
  Transmission Date: 20171127
  Serious: Yes (Life-Threatening)
  Sender: FDA-Public Use
  Company Number: GB-TEVA-792753ACC

PATIENT
  Age: 65 Year
  Sex: Male
  Weight: 93 kg

DRUGS (12)
  1. DOCUSATE [Concomitant]
     Active Substance: DOCUSATE
  2. BORTEZOMIB [Concomitant]
     Active Substance: BORTEZOMIB
  3. OMEPRAZOL [Concomitant]
     Active Substance: OMEPRAZOLE
  4. TINZAPARIN SODIUM [Concomitant]
     Active Substance: TINZAPARIN SODIUM
  5. BENDROFLUMETHIAZIDE [Concomitant]
     Active Substance: BENDROFLUMETHIAZIDE
  6. ALLOPURINOL. [Suspect]
     Active Substance: ALLOPURINOL
     Indication: TUMOUR LYSIS SYNDROME
     Route: 048
     Dates: start: 20170522, end: 20170529
  7. ACICLOVIR [Concomitant]
     Active Substance: ACYCLOVIR
  8. PRAVASTATIN SODIUM. [Concomitant]
     Active Substance: PRAVASTATIN SODIUM
  9. DEXAMETASONE [Concomitant]
     Active Substance: DEXAMETHASONE
  10. ENALAPRIL MALEATE. [Concomitant]
     Active Substance: ENALAPRIL MALEATE
  11. ATENOLOL. [Concomitant]
     Active Substance: ATENOLOL
  12. THALIDOMIDE [Concomitant]
     Active Substance: THALIDOMIDE

REACTIONS (4)
  - Anuria [Recovered/Resolved]
  - Hypotension [Recovered/Resolved]
  - Drug reaction with eosinophilia and systemic symptoms [Recovered/Resolved]
  - Acute kidney injury [Recovered/Resolved]

NARRATIVE: CASE EVENT DATE: 20170616
